FAERS Safety Report 16127835 (Version 1)
Quarter: 2019Q1

REPORT INFORMATION
  Report Type: Spontaneous
  Country: US (occurrence: US)
  Receive Date: 20190328
  Receipt Date: 20190328
  Transmission Date: 20190418
  Serious: Yes (Death, Hospitalization, Other)
  Sender: FDA-Public Use
  Company Number: US-ALKEM LABORATORIES LIMITED-US-ALKEM-2019-02646

PATIENT
  Age: 56 Year
  Sex: Female

DRUGS (3)
  1. DULOXETINE HYDROCHLORIDE. [Suspect]
     Active Substance: DULOXETINE HYDROCHLORIDE
     Dosage: 60 MG, QD
     Route: 065
  2. MITRAZAPINE [Concomitant]
     Indication: INSOMNIA
     Dosage: 15 MG/NIGHT
     Route: 065
  3. DULOXETINE HYDROCHLORIDE. [Suspect]
     Active Substance: DULOXETINE HYDROCHLORIDE
     Indication: DEPRESSION
     Dosage: 30 MG, QD
     Route: 065

REACTIONS (3)
  - Acute hepatic failure [Fatal]
  - Condition aggravated [Fatal]
  - Encephalopathy [Fatal]
